FAERS Safety Report 7983435-X (Version None)
Quarter: 2011Q4

REPORT INFORMATION
  Report Type: 
  Country: None (occurrence: None)
  Receive Date: 20111215
  Receipt Date: 20111208
  Transmission Date: 20120403
  Serious: Yes (Other)
  Sender: FDA-Public Use
  Company Number: US-BAYER-200940281NA

PATIENT
  Age: 71 Year
  Sex: Female

DRUGS (8)
  1. SOLU-MEDROL [Concomitant]
  2. ACETYLSALICYLIC ACID SRT [Concomitant]
  3. PEPCID [Concomitant]
  4. METOPROLOL TARTRATE [Concomitant]
  5. LASIX [Concomitant]
  6. COLACE [Concomitant]
  7. TRASYLOL [Suspect]
     Indication: CORONARY ARTERY BYPASS
     Dosage: UNK
     Route: 042
     Dates: start: 20050511, end: 20050511
  8. ZINACEF [Concomitant]

REACTIONS (13)
  - AMPUTATION [None]
  - EMOTIONAL DISTRESS [None]
  - PAIN [None]
  - RENAL FAILURE [None]
  - RENAL IMPAIRMENT [None]
  - FEAR [None]
  - ANXIETY [None]
  - RENAL INJURY [None]
  - PARALYSIS [None]
  - INJURY [None]
  - ANHEDONIA [None]
  - STRESS [None]
  - UNEVALUABLE EVENT [None]
